FAERS Safety Report 9539208 (Version 1)
Quarter: 2013Q3

REPORT INFORMATION
  Report Type: Spontaneous
  Country: US (occurrence: None)
  Receive Date: 20130917
  Receipt Date: 20130917
  Transmission Date: 20140515
  Serious: Yes (Hospitalization, Other)
  Sender: FDA-Public Use
  Company Number: 2012-000689

PATIENT
  Age: 55 Year
  Sex: Female
  Weight: 74.5 kg

DRUGS (6)
  1. ACTONEL [Suspect]
     Indication: OSTEOPENIA
     Dosage: 35 MG ONCE WEEKLY, ORAL
     Route: 048
     Dates: start: 200306
  2. FOSAMAX [Suspect]
     Dates: start: 1997, end: 2009
  3. ACTIVELLA (ESTRADIOL, NORETHISTERONE ACETATE) [Concomitant]
  4. ACIPHEX (RABEPRAZOLE SODIUM) [Concomitant]
  5. DETROL (TOLTERODINE L-TARTRATE) [Concomitant]
  6. CALCIUM (CALCIUM) [Concomitant]

REACTIONS (9)
  - Femur fracture [None]
  - Stress fracture [None]
  - Fracture nonunion [None]
  - Fracture displacement [None]
  - Joint crepitation [None]
  - Device breakage [None]
  - Bone density decreased [None]
  - Condition aggravated [None]
  - Arthralgia [None]
